FAERS Safety Report 4395251-9 (Version None)
Quarter: 2004Q3

REPORT INFORMATION
  Report Type: 
  Country: None (occurrence: None)
  Receive Date: 20040706
  Receipt Date: 20040629
  Transmission Date: 20050211
  Serious: Yes (Disabling)
  Sender: FDA-Public Use
  Company Number: 2004-06-0340

PATIENT
  Age: 35 Year
  Sex: Male
  Weight: 78 kg

DRUGS (2)
  1. INTRON A [Suspect]
     Indication: HEPATITIS C
     Dosage: 3 MIU TIW INTRAMUSCULAR
     Route: 030
     Dates: start: 20040119, end: 20040604
  2. KOGENATE (OCTOCOG ALFA) [Concomitant]

REACTIONS (2)
  - BRAIN STEM HAEMORRHAGE [None]
  - LOSS OF CONSCIOUSNESS [None]
